FAERS Safety Report 5405355-7 (Version None)
Quarter: 2007Q3

REPORT INFORMATION
  Report Type: 
  Country: None (occurrence: None)
  Receive Date: 20070803
  Receipt Date: 20070724
  Transmission Date: 20080115
  Serious: Yes (Other)
  Sender: FDA-Public Use
  Company Number: FR-ABBOTT-07P-056-0375525-00

PATIENT
  Age: 47 Year
  Sex: Female

DRUGS (3)
  1. DEPAKOTE [Suspect]
     Indication: BIPOLAR DISORDER
     Route: 048
     Dates: start: 20070713, end: 20070718
  2. HALOPERIDOL DECANOATE [Concomitant]
     Indication: BIPOLAR DISORDER
     Route: 030
  3. CLONAZEPAM [Concomitant]
     Indication: BIPOLAR DISORDER
     Route: 048
     Dates: start: 20070608

REACTIONS (1)
  - ANGIOEDEMA [None]
